FAERS Safety Report 5675879-6 (Version None)
Quarter: 2008Q1

REPORT INFORMATION
  Report Type: 
  Country: None (occurrence: None)
  Receive Date: 20080321
  Receipt Date: 20080307
  Transmission Date: 20080703
  Serious: Yes (Hospitalization, Congenital Anomaly)
  Sender: FDA-Public Use
  Company Number: A0662852A

PATIENT
  Sex: Male

DRUGS (2)
  1. PAXIL [Suspect]
     Indication: ANXIETY
     Dosage: 20MG PER DAY
     Dates: start: 19950101, end: 20010101
  2. VITAMIN TAB [Concomitant]
     Dates: start: 19980101

REACTIONS (20)
  - BRONCHIOLITIS [None]
  - CARDIAC FAILURE CONGESTIVE [None]
  - CARDIAC MURMUR [None]
  - CENTRAL AUDITORY PROCESSING DISORDER [None]
  - CHOKING [None]
  - COUGH [None]
  - CYANOSIS [None]
  - DEVELOPMENTAL DELAY [None]
  - DRUG EXPOSURE DURING PREGNANCY [None]
  - DYSPNOEA [None]
  - FAILURE TO THRIVE [None]
  - HYPOXIA [None]
  - LEARNING DISABILITY [None]
  - MALNUTRITION [None]
  - ORAL INTAKE REDUCED [None]
  - RESPIRATORY DISTRESS [None]
  - TRICUSPID VALVE INCOMPETENCE [None]
  - VENTRICULAR SEPTAL DEFECT [None]
  - WEIGHT GAIN POOR [None]
  - WHEEZING [None]
